FAERS Safety Report 21719450 (Version 1)
Quarter: 2022Q4

REPORT INFORMATION
  Report Type: Spontaneous
  Country: US (occurrence: US)
  Receive Date: 20221213
  Receipt Date: 20221213
  Transmission Date: 20230113
  Serious: Yes (Other)
  Sender: FDA-Public Use
  Company Number: US-NAARI PTE LIMITED-2022NP000088

PATIENT
  Age: 26 Year

DRUGS (2)
  1. NORETHINDRONE [Suspect]
     Active Substance: NORETHINDRONE
     Indication: Gender dysphoria
     Dosage: UNK
     Route: 065
  2. TESTOSTERONE CYPIONATE [Suspect]
     Active Substance: TESTOSTERONE CYPIONATE
     Indication: Gender dysphoria
     Dosage: UNK, 20 MONTHS
     Route: 065

REACTIONS (3)
  - Prostatic disorder [Unknown]
  - Metaplasia [Unknown]
  - Off label use [Unknown]
